FAERS Safety Report 13825565 (Version 5)
Quarter: 2017Q4

REPORT INFORMATION
  Report Type: Report from Study
  Country: CA (occurrence: CA)
  Receive Date: 20170802
  Receipt Date: 20171130
  Transmission Date: 20180320
  Serious: Yes (Hospitalization, Disabling, Other)
  Sender: FDA-Public Use
  Company Number: CA-TAKEDA-2016TUS007119

PATIENT
  Age: 50 Year
  Sex: Female

DRUGS (9)
  1. RAN VENLAFAXINE XR [Concomitant]
     Dosage: 37.5 MG, QD
  2. IMURAN [Concomitant]
     Active Substance: AZATHIOPRINE
     Dosage: UNK UNK, QD
  3. ACETAMINOPHEN. [Concomitant]
     Active Substance: ACETAMINOPHEN
     Indication: PREMEDICATION
     Dosage: 650 MG, UNK
     Route: 048
  4. SALOFALK [Concomitant]
     Active Substance: MESALAMINE
     Dosage: UNK UNK, BID
  5. RAN-RAMIPRIL [Concomitant]
     Indication: BLOOD PRESSURE ABNORMAL
     Dosage: 2.5 MG, QD
  6. PREDNISONE. [Concomitant]
     Active Substance: PREDNISONE
     Dosage: UNK
  7. VEDOLIZUMAB [Suspect]
     Active Substance: VEDOLIZUMAB
     Indication: COLITIS ULCERATIVE
     Dosage: 300 MG, UNK
     Route: 042
     Dates: start: 20150924, end: 20170130
  8. METHYLPREDNISOLONE. [Concomitant]
     Active Substance: METHYLPREDNISOLONE
     Indication: PREMEDICATION
     Dosage: 80 MG, UNK
     Route: 042
  9. VEDOLIZUMAB [Suspect]
     Active Substance: VEDOLIZUMAB
     Dosage: 300 MG, Q4WEEKS
     Route: 042
     Dates: start: 20170302

REACTIONS (14)
  - Blood iron decreased [Unknown]
  - Colitis ulcerative [Unknown]
  - Dehydration [Unknown]
  - Gastroenteritis viral [Not Recovered/Not Resolved]
  - Haemoglobin decreased [Unknown]
  - Depression [Unknown]
  - Heart rate increased [Unknown]
  - Diarrhoea haemorrhagic [Not Recovered/Not Resolved]
  - Dizziness postural [Unknown]
  - Fatigue [Not Recovered/Not Resolved]
  - Asthenia [Unknown]
  - Stress [Unknown]
  - Malaise [Unknown]
  - Off label use [Unknown]

NARRATIVE: CASE EVENT DATE: 2016
